FAERS Safety Report 7243781-4 (Version None)
Quarter: 2011Q1

REPORT INFORMATION
  Report Type: 
  Country: None (occurrence: None)
  Receive Date: 20110125
  Receipt Date: 20110119
  Transmission Date: 20110831
  Serious: No
  Sender: FDA-Public Use
  Company Number: US-PFIZER INC-2011013498

PATIENT
  Sex: Male
  Weight: 83.9 kg

DRUGS (2)
  1. LYRICA [Suspect]
     Indication: NECK INJURY
  2. LYRICA [Suspect]
     Indication: FIBROMYALGIA
     Dosage: 50 MG, UNK
     Route: 048
     Dates: start: 20101001

REACTIONS (6)
  - VISION BLURRED [None]
  - INSOMNIA [None]
  - PAIN [None]
  - WEIGHT INCREASED [None]
  - DRY MOUTH [None]
  - TINNITUS [None]
